FAERS Safety Report 13738425 (Version 1)
Quarter: 2017Q3

REPORT INFORMATION
  Report Type: Spontaneous
  Country: US (occurrence: US)
  Receive Date: 20170710
  Receipt Date: 20170710
  Transmission Date: 20171127
  Serious: Yes (Death)
  Sender: FDA-Public Use
  Company Number: US-TAIHO ONCOLOGY INC-EU-2017-00965

PATIENT
  Sex: Male

DRUGS (8)
  1. TAMSULOSIN [Concomitant]
     Active Substance: TAMSULOSIN
     Dosage: NI
  2. LONSURF [Suspect]
     Active Substance: TIPIRACIL HYDROCHLORIDE\TRIFLURIDINE
     Indication: COLON CANCER
     Route: 048
     Dates: start: 20170224, end: 2017
  3. ACETYLSALICYLIC ACID [Concomitant]
     Active Substance: ASPIRIN
  4. DEMADEX [Concomitant]
     Active Substance: TORSEMIDE
     Dosage: NI
  5. OXYCODONE [Concomitant]
     Active Substance: OXYCODONE
     Dosage: NI
  6. LOVENOX [Concomitant]
     Active Substance: ENOXAPARIN SODIUM
     Dosage: NI
  7. FINASTERIDE. [Concomitant]
     Active Substance: FINASTERIDE
     Dosage: NI
  8. MAGNESIUM OXIDE. [Concomitant]
     Active Substance: MAGNESIUM OXIDE
     Dosage: NI

REACTIONS (2)
  - Performance status decreased [Unknown]
  - Death [Fatal]

NARRATIVE: CASE EVENT DATE: 2017
